FAERS Safety Report 5191409-X (Version None)
Quarter: 2006Q4

REPORT INFORMATION
  Report Type: 
  Country: None (occurrence: None)
  Receive Date: 20061226
  Receipt Date: 20061221
  Transmission Date: 20070319
  Serious: Yes (Life-Threatening)
  Sender: FDA-Public Use
  Company Number: FR-AMGEN-UK204431

PATIENT
  Age: 69 Year
  Sex: Female

DRUGS (6)
  1. NEULASTA [Suspect]
     Indication: CHEMOTHERAPY
     Route: 058
     Dates: start: 20061101, end: 20061101
  2. ZOFRAN [Suspect]
     Route: 048
     Dates: start: 20061102, end: 20061105
  3. CAELYX [Suspect]
     Route: 042
     Dates: start: 20061031, end: 20061031
  4. EMEND [Suspect]
     Route: 048
     Dates: start: 20061031, end: 20061102
  5. CARBOPLATIN [Suspect]
     Route: 042
     Dates: start: 20061031, end: 20061031
  6. PRIMPERAN TAB [Concomitant]

REACTIONS (2)
  - APHAGIA [None]
  - PHARYNGEAL OEDEMA [None]
